FAERS Safety Report 5648021-5 (Version None)
Quarter: 2008Q1

REPORT INFORMATION
  Report Type: 
  Country: None (occurrence: None)
  Receive Date: 20080304
  Receipt Date: 20080229
  Transmission Date: 20080703
  Serious: Yes (Hospitalization, Disabling)
  Sender: FDA-Public Use
  Company Number: JP-SP-2007-01996

PATIENT
  Age: 63 Year
  Sex: Female

DRUGS (3)
  1. IMMUCYST [Suspect]
     Indication: BLADDER TRANSITIONAL CELL CARCINOMA
     Route: 043
     Dates: start: 20070404, end: 20070502
  2. IMMUCYST [Suspect]
     Route: 043
     Dates: start: 20070404, end: 20070502
  3. IMMUCYST [Suspect]
     Route: 043
     Dates: start: 20070404, end: 20070502

REACTIONS (9)
  - ARTHRITIS [None]
  - CONJUNCTIVITIS [None]
  - CYSTITIS [None]
  - HAEMATURIA [None]
  - HEPATIC FUNCTION ABNORMAL [None]
  - PYREXIA [None]
  - REITER'S SYNDROME [None]
  - URETHRITIS [None]
  - WHITE BLOOD CELL COUNT INCREASED [None]
